FAERS Safety Report 25872318 (Version 2)
Quarter: 2025Q4

REPORT INFORMATION
  Report Type: Report from Study
  Country: US (occurrence: US)
  Receive Date: 20251002
  Receipt Date: 20251008
  Transmission Date: 20260117
  Serious: Yes (Other)
  Sender: ABBVIE
  Company Number: US-ABBVIE-6474886

PATIENT
  Age: 70 Year
  Sex: Female
  Weight: 50.8 kg

DRUGS (6)
  1. VYALEV [Suspect]
     Active Substance: FOSCARBIDOPA\FOSLEVODOPA
     Indication: Parkinson^s disease
     Dosage: 24 HOUR INFUSION
     Route: 058
     Dates: start: 20250722, end: 20250921
  2. GOCOVRI [Concomitant]
     Active Substance: AMANTADINE
     Indication: Parkinson^s disease
  3. LORAZEPAM [Concomitant]
     Active Substance: LORAZEPAM
     Indication: Sleep disorder
  4. CARBIDOPA\LEVODOPA [Concomitant]
     Active Substance: CARBIDOPA\LEVODOPA
     Indication: Parkinson^s disease
  5. MUCUS RELIEF DM [Concomitant]
     Active Substance: DEXTROMETHORPHAN HYDROBROMIDE\GUAIFENESIN
     Indication: Product used for unknown indication
  6. Equate Allergy Relief [Concomitant]
     Indication: Product used for unknown indication

REACTIONS (7)
  - Staphylococcus test positive [Recovering/Resolving]
  - Infusion site infection [Recovering/Resolving]
  - Catheter site related reaction [Recovering/Resolving]
  - Catheter site pain [Recovering/Resolving]
  - Catheter site swelling [Recovering/Resolving]
  - Catheter site erythema [Recovering/Resolving]
  - Subcutaneous drug absorption impaired [Unknown]

NARRATIVE: CASE EVENT DATE: 20250101
